FAERS Safety Report 16165354 (Version 1)
Quarter: 2019Q2

REPORT INFORMATION
  Report Type: Spontaneous
  Country: CN (occurrence: CN)
  Receive Date: 20190405
  Receipt Date: 20190405
  Transmission Date: 20190711
  Serious: Yes (Hospitalization)
  Sender: FDA-Public Use
  Company Number: CN-009507513-1903CHN012155

PATIENT
  Age: 29 Year
  Sex: Male

DRUGS (7)
  1. ATORVASTATIN [Suspect]
     Active Substance: ATORVASTATIN
     Indication: TYPE IIA HYPERLIPIDAEMIA
     Dosage: 10 MILLIGRAM/D, QN (AT NIGHT)
     Dates: start: 2009
  2. ATORVASTATIN [Suspect]
     Active Substance: ATORVASTATIN
     Dosage: 20 MILLIGRAM, UNKNOWN
     Dates: start: 2010
  3. ATORVASTATIN [Suspect]
     Active Substance: ATORVASTATIN
     Dosage: 40 MILLIGRAM, UNKNOWN
     Dates: start: 2014
  4. PROBUCOL [Suspect]
     Active Substance: PROBUCOL
     Dosage: 0.25 MG/D, BID
     Dates: start: 2014
  5. EZETIMIBE. [Suspect]
     Active Substance: EZETIMIBE
     Indication: TYPE IIA HYPERLIPIDAEMIA
     Dosage: 10 MILLIGRAM/D, QD
     Route: 048
     Dates: start: 2009
  6. EZETIMIBE. [Suspect]
     Active Substance: EZETIMIBE
     Dosage: 10 MILLIGRAM/D, QD
     Route: 048
     Dates: start: 2014
  7. PROBUCOL [Suspect]
     Active Substance: PROBUCOL
     Indication: TYPE IIA HYPERLIPIDAEMIA
     Dosage: 0.25 MG/D, BID
     Dates: start: 2010

REACTIONS (1)
  - Drug ineffective [Unknown]

NARRATIVE: CASE EVENT DATE: 2018
